FAERS Safety Report 5101911-4 (Version None)
Quarter: 2006Q3

REPORT INFORMATION
  Report Type: 
  Country: None (occurrence: None)
  Receive Date: 20060907
  Receipt Date: 20060428
  Transmission Date: 20061208
  Serious: Yes (Other)
  Sender: FDA-Public Use
  Company Number: 2006VX001255

PATIENT
  Age: 58 Year
  Sex: Male
  Weight: 82.1011 kg

DRUGS (5)
  1. INTERFERON ALFACON-1 [Suspect]
     Indication: HEPATITIS C
     Dosage: 15 UG; TIW; SC
     Route: 058
     Dates: start: 20060314, end: 20060421
  2. RIBAVIRIN [Concomitant]
  3. LISINOPRIL [Concomitant]
  4. FELODIPINE [Concomitant]
  5. RIBAVIRIN [Concomitant]

REACTIONS (1)
  - HEPATIC NEOPLASM MALIGNANT [None]
